FAERS Safety Report 12521604 (Version 1)
Quarter: 2016Q3

REPORT INFORMATION
  Report Type: Spontaneous
  Country: CN (occurrence: CN)
  Receive Date: 20160701
  Receipt Date: 20160701
  Transmission Date: 20161109
  Serious: Yes (Death, Hospitalization)
  Sender: FDA-Public Use
  Company Number: PHHY2016CN088849

PATIENT
  Age: 53 Year
  Sex: Female

DRUGS (2)
  1. TASIGNA [Suspect]
     Active Substance: NILOTINIB
     Indication: BLAST CRISIS IN MYELOGENOUS LEUKAEMIA
     Dosage: 400 MG, BID
     Route: 065
     Dates: start: 20150507
  2. HYDROXYCARBAMIDE [Suspect]
     Active Substance: HYDROXYUREA
     Indication: BLAST CRISIS IN MYELOGENOUS LEUKAEMIA
     Dosage: UNK
     Route: 065

REACTIONS (6)
  - Dizziness [Fatal]
  - Haemorrhage [Fatal]
  - Bone marrow failure [Fatal]
  - Infection [Fatal]
  - Pyrexia [Fatal]
  - Anaemia [Fatal]
